FAERS Safety Report 10131344 (Version 3)
Quarter: 2014Q2

REPORT INFORMATION
  Report Type: Spontaneous
  Country: US (occurrence: US)
  Receive Date: 20140428
  Receipt Date: 20140613
  Transmission Date: 20141212
  Serious: No
  Sender: FDA-Public Use
  Company Number: US-PFIZER INC-2014116479

PATIENT
  Age: 77 Year
  Sex: Female
  Weight: 79.37 kg

DRUGS (2)
  1. LYRICA [Suspect]
     Indication: SPINAL COLUMN STENOSIS
     Dosage: 50 MG, 2X/DAY
     Route: 048
     Dates: start: 2011
  2. LYRICA [Suspect]
     Dosage: 75 MG, 5X/DAY
     Route: 048

REACTIONS (1)
  - Burning sensation [Unknown]
